FAERS Safety Report 8402882 (Version 3)
Quarter: 2012Q4

REPORT INFORMATION
  Report Type: 
  Country: US (occurrence: US)
  Receive Date: 20120213
  Receipt Date: 20121001
  Transmission Date: 20130627
  Serious: Yes (Hospitalization)
  Sender: FDA-Public Use
  Company Number: US-BAYER-2012-012255

PATIENT
  Age: 28 Year
  Sex: Female
  Weight: 124.72 kg

DRUGS (7)
  1. YASMIN [Suspect]
     Indication: MENORRHAGIA
  2. YASMIN [Suspect]
     Indication: DYSMENORRHOEA
  3. YASMIN [Suspect]
     Indication: CONTRACEPTION
  4. OCELLA [Suspect]
     Dosage: UNK
     Route: 048
     Dates: start: 200807, end: 200912
  5. DICLOFENAC SODIUM [Concomitant]
     Dosage: 75 mg, UNK
     Dates: start: 20091130
  6. CYCLOBENZAPRINE [Concomitant]
     Dosage: 10 mg, UNK
     Dates: start: 20091130
  7. FLEXERIL [Concomitant]
     Indication: ARTHRALGIA

REACTIONS (10)
  - Pulmonary embolism [Recovered/Resolved]
  - Deep vein thrombosis [Recovered/Resolved]
  - Dyspnoea [Recovered/Resolved]
  - Pain [Recovered/Resolved]
  - Injury [Recovered/Resolved]
  - Loss of consciousness [Recovered/Resolved]
  - Anxiety [None]
  - Anhedonia [None]
  - Fear [None]
  - Psychological trauma [None]
